FAERS Safety Report 9799890 (Version 1)
Quarter: 2014Q1

REPORT INFORMATION
  Report Type: Spontaneous
  Country: GB (occurrence: GB)
  Receive Date: 20140106
  Receipt Date: 20140106
  Transmission Date: 20141002
  Serious: Yes (Other)
  Sender: FDA-Public Use
  Company Number: GB-GLAXOSMITHKLINE-B0956804A

PATIENT
  Sex: Male
  Weight: 90 kg

DRUGS (5)
  1. SERETIDE [Suspect]
     Indication: ASTHMA
     Dosage: 500MCG PER DAY
     Route: 055
     Dates: start: 20131107, end: 20131124
  2. VENTOLIN [Concomitant]
  3. NASONEX [Concomitant]
     Dates: start: 20131107
  4. CLENIL MODULITE [Concomitant]
  5. BECONASE [Concomitant]
     Dates: end: 20131107

REACTIONS (3)
  - Palpitations [Recovering/Resolving]
  - Atrial flutter [Recovering/Resolving]
  - Extrasystoles [Recovering/Resolving]
